FAERS Safety Report 12249381 (Version 1)
Quarter: 2016Q2

REPORT INFORMATION
  Report Type: Report from Study
  Country: IT (occurrence: IT)
  Receive Date: 20160408
  Receipt Date: 20160408
  Transmission Date: 20160815
  Serious: Yes (Hospitalization)
  Sender: FDA-Public Use
  Company Number: IT-SA-2016SA067865

PATIENT
  Age: 70 Year
  Sex: Male

DRUGS (4)
  1. IODIXANOL [Concomitant]
     Active Substance: IODIXANOL
  2. SALINE [Concomitant]
     Active Substance: SODIUM CHLORIDE
  3. N-ACETYLCYSTEINE [Concomitant]
     Active Substance: ACETYLCYSTEINE
     Dosage: 1500 MG IN EACH 1 LITER OF SALINE
  4. FUROSEMIDE. [Suspect]
     Active Substance: FUROSEMIDE
     Indication: ACUTE KIDNEY INJURY
     Route: 042

REACTIONS (1)
  - Pulmonary oedema [Unknown]
